FAERS Safety Report 4378717-7 (Version None)
Quarter: 2004Q2

REPORT INFORMATION
  Report Type: 
  Country: None (occurrence: None)
  Receive Date: 20040616
  Receipt Date: 20040413
  Transmission Date: 20050107
  Serious: Yes (Life-Threatening, Hospitalization, Other)
  Sender: FDA-Public Use
  Company Number: PHHO2004JP05429

PATIENT
  Age: 58 Year
  Sex: Male

DRUGS (4)
  1. FLUOXYMESTERONE [Concomitant]
     Dosage: 8 MG, UNK
     Route: 048
  2. LOSARTAN POTASSIUM [Concomitant]
     Indication: HYPERTENSION
     Dosage: 50 MG, UNK
     Route: 048
  3. LEVOTHYROXINE SODIUM [Concomitant]
     Indication: HYPOPITUITARISM
     Dosage: 75-125MG
     Route: 048
  4. SANDOSTATIN [Suspect]
     Indication: ACROMEGALY
     Dosage: UNSPECIFIED
     Route: 030
     Dates: start: 20010203, end: 20040419

REACTIONS (18)
  - ABDOMINAL PAIN [None]
  - ANURIA [None]
  - BACK PAIN [None]
  - BILE DUCT STONE [None]
  - CHOLANGITIS [None]
  - CHOLECYSTITIS [None]
  - CHOLELITHIASIS [None]
  - CHOLELITHOTOMY [None]
  - DISSEMINATED INTRAVASCULAR COAGULATION [None]
  - HAEMODIALYSIS [None]
  - HEPATIC FAILURE [None]
  - JAUNDICE [None]
  - PLATELET COUNT DECREASED [None]
  - PNEUMONIA [None]
  - RENAL FAILURE [None]
  - RESPIRATORY FAILURE [None]
  - SEPTIC SHOCK [None]
  - TRACHEOSTOMY [None]
